FAERS Safety Report 9513606 (Version 1)
Quarter: 2013Q3

REPORT INFORMATION
  Report Type: Spontaneous
  Country: US (occurrence: US)
  Receive Date: 20130910
  Receipt Date: 20130910
  Transmission Date: 20140515
  Serious: Yes (Other)
  Sender: FDA-Public Use
  Company Number: US-GLAXOSMITHKLINE-A1040886A

PATIENT
  Age: 36 Year
  Sex: Female

DRUGS (1)
  1. VALTREX [Suspect]
     Indication: HERPES ZOSTER
     Route: 048

REACTIONS (10)
  - Herpes zoster oticus [Not Recovered/Not Resolved]
  - Herpes zoster [Not Recovered/Not Resolved]
  - Vertigo [Not Recovered/Not Resolved]
  - Upper limb fracture [Not Recovered/Not Resolved]
  - Altered visual depth perception [Not Recovered/Not Resolved]
  - Eye pain [Not Recovered/Not Resolved]
  - Herpes simplex [Not Recovered/Not Resolved]
  - Ear disorder [Not Recovered/Not Resolved]
  - Drug ineffective [Not Recovered/Not Resolved]
  - Ill-defined disorder [Not Recovered/Not Resolved]
